FAERS Safety Report 21185267 (Version 1)
Quarter: 2022Q3

REPORT INFORMATION
  Report Type: Spontaneous
  Country: JP (occurrence: JP)
  Receive Date: 20220808
  Receipt Date: 20220808
  Transmission Date: 20221027
  Serious: Yes (Other)
  Sender: FDA-Public Use
  Company Number: JP-Indivior Limited- INDV-135375-2022

PATIENT

DRUGS (8)
  1. BUPRENORPHINE HYDROCHLORIDE [Suspect]
     Active Substance: BUPRENORPHINE HYDROCHLORIDE
     Indication: Epidural analgesia
     Dosage: 10 ML PER HOUR (AT 12: 33)
     Route: 064
  2. LIDOCAINE HYDROCHLORIDE [Suspect]
     Active Substance: LIDOCAINE HYDROCHLORIDE
     Indication: Epidural anaesthesia
     Dosage: 3ML OF 1 %
     Route: 064
  3. LIDOCAINE HYDROCHLORIDE [Suspect]
     Active Substance: LIDOCAINE HYDROCHLORIDE
     Dosage: 3ML OF 1.5% (AT 12:41)
     Route: 008
  4. OXYTOCIN [Suspect]
     Active Substance: OXYTOCIN
     Indication: Labour induction
     Dosage: 5 UNITS OF OXYTOCIN WAS STARTED AT 10 ML/HOUR (AT 7:00)
     Route: 064
  5. OXYTOCIN [Suspect]
     Active Substance: OXYTOCIN
     Dosage: DOSE WAS INCREASED TO 10 ML/HOUR EVERY 30 MINUTES
     Route: 064
  6. OXYTOCIN [Suspect]
     Active Substance: OXYTOCIN
     Dosage: 90 ML/HOUR (AT 11:00)
     Route: 064
  7. ROPIVACAINE HYDROCHLORIDE [Suspect]
     Active Substance: ROPIVACAINE HYDROCHLORIDE
     Indication: Epidural anaesthesia
     Dosage: 0. 125% AT 10 ML PER HOUR (AT 12:33)
     Route: 064
  8. RINGERS SOLUTION [Suspect]
     Active Substance: CALCIUM CHLORIDE\POTASSIUM CHLORIDE\SODIUM CHLORIDE
     Indication: Epidural anaesthesia
     Dosage: 500 ML ALONG WITH OXYTOCIN
     Route: 064

REACTIONS (5)
  - Neonatal asphyxia [Unknown]
  - Hypothermia neonatal [Unknown]
  - Hypoxic-ischaemic encephalopathy [Unknown]
  - Somatic symptom disorder [Unknown]
  - Foetal exposure during pregnancy [Recovered/Resolved]
